FAERS Safety Report 16578229 (Version 1)
Quarter: 2019Q3

REPORT INFORMATION
  Report Type: Report from Study
  Country: IT (occurrence: IT)
  Receive Date: 20190716
  Receipt Date: 20190716
  Transmission Date: 20191004
  Serious: Yes (Other)
  Sender: FDA-Public Use
  Company Number: IT-FERRINGPH-2019FE04222

PATIENT
  Age: 6 Year
  Sex: Male
  Weight: 20 kg

DRUGS (1)
  1. DESMOPRESSIN [Suspect]
     Active Substance: DESMOPRESSIN
     Indication: DIABETES MELLITUS
     Dosage: 120 ?G, 1 TIME DAILY
     Route: 048
     Dates: start: 20190601, end: 20190617

REACTIONS (5)
  - Fatigue [Recovered/Resolved]
  - Mood altered [Recovered/Resolved]
  - Night sweats [Recovered/Resolved]
  - Product use in unapproved indication [Recovered/Resolved]
  - Asthenia [Recovered/Resolved]

NARRATIVE: CASE EVENT DATE: 20190601
